FAERS Safety Report 17985365 (Version 1)
Quarter: 2020Q3

REPORT INFORMATION
  Report Type: Report from Study
  Country: None (occurrence: BR)
  Receive Date: 20200706
  Receipt Date: 20200706
  Transmission Date: 20201103
  Serious: No
  Sender: FDA-Public Use
  Company Number: BR-ABBVIE-20K-020-3464712-00

PATIENT
  Sex: Female
  Weight: 79 kg

DRUGS (3)
  1. HUMIRA [Suspect]
     Active Substance: ADALIMUMAB
     Route: 058
  2. ZOLPIDEM HEMITARTRATE [Concomitant]
     Active Substance: ZOLPIDEM TARTRATE
     Indication: SLEEP DISORDER THERAPY
     Route: 060
  3. HUMIRA [Suspect]
     Active Substance: ADALIMUMAB
     Indication: CROHN^S DISEASE
     Dosage: 4 INJECTIONS AT THE FIRST APPLICATION
     Route: 058
     Dates: start: 20161214, end: 20161214

REACTIONS (4)
  - Ultrasound scan vagina abnormal [Recovered/Resolved]
  - Tooth disorder [Unknown]
  - Infection [Unknown]
  - Anxiety disorder [Unknown]
